FAERS Safety Report 10133321 (Version 2)
Quarter: 2014Q2

REPORT INFORMATION
  Report Type: Report from Study
  Country: DE (occurrence: DE)
  Receive Date: 20140428
  Receipt Date: 20140604
  Transmission Date: 20141212
  Serious: Yes (Hospitalization)
  Sender: FDA-Public Use
  Company Number: DE-ASTELLAS-2014EU004168

PATIENT
  Age: 55 Year
  Sex: Female

DRUGS (7)
  1. TACROLIMUS [Suspect]
     Indication: IMMUNOSUPPRESSION
     Route: 048
     Dates: start: 20071120
  2. TACROLIMUS [Suspect]
     Route: 048
     Dates: start: 200805
  3. SIROLIMUS [Suspect]
     Indication: PROPHYLAXIS AGAINST TRANSPLANT REJECTION
     Route: 048
     Dates: start: 20071210
  4. SIROLIMUS [Suspect]
     Route: 048
     Dates: start: 20071218
  5. SIROLIMUS [Suspect]
     Route: 048
     Dates: start: 20071219
  6. COPEGUS [Suspect]
     Indication: HEPATITIS
     Dosage: UNK UNK, UNKNOWN FREQ.
     Route: 065
     Dates: start: 20080303
  7. PEGASYS [Suspect]
     Indication: HEPATITIS
     Dosage: UNK UNK, UNKNOWN FREQ.
     Route: 065
     Dates: start: 20080203

REACTIONS (5)
  - Blood creatine increased [Recovered/Resolved]
  - Oedema [Recovered/Resolved]
  - Anaemia [Recovered/Resolved]
  - Leukopenia [Not Recovered/Not Resolved]
  - Thrombocytopenia [Not Recovered/Not Resolved]
